FAERS Safety Report 16415232 (Version 4)
Quarter: 2020Q4

REPORT INFORMATION
  Report Type: Spontaneous
  Country: US (occurrence: US)
  Receive Date: 20190611
  Receipt Date: 20201211
  Transmission Date: 20210113
  Serious: No
  Sender: FDA-Public Use
  Company Number: US-PFIZER INC-2019247144

PATIENT
  Age: 71 Year
  Sex: Female

DRUGS (1)
  1. LYRICA [Suspect]
     Active Substance: PREGABALIN
     Dosage: 250 MG, 2X/DAY (100 MG, EVERY MORNING AND 150 MG EVERY BEDTIME)
     Route: 048

REACTIONS (2)
  - Sleep disorder [Unknown]
  - Withdrawal syndrome [Unknown]
